FAERS Safety Report 4577188-5 (Version None)
Quarter: 2005Q1

REPORT INFORMATION
  Report Type: 
  Country: None (occurrence: None)
  Receive Date: 20050210
  Receipt Date: 20050125
  Transmission Date: 20050727
  Serious: Yes (Other)
  Sender: FDA-Public Use
  Company Number: PHBS2005JP01560

PATIENT
  Age: 26 Year
  Sex: Female

DRUGS (6)
  1. NEORAL [Suspect]
     Indication: PSORIASIS
     Dosage: 200 MG/DAY
     Route: 048
     Dates: start: 20041101
  2. NAUZELIN [Concomitant]
  3. LENDORMIN [Concomitant]
  4. PRIMPERAN INJ [Concomitant]
  5. CERCINE [Concomitant]
  6. TAKEPRON [Concomitant]

REACTIONS (4)
  - ANOREXIA [None]
  - JAUNDICE [None]
  - RENAL FAILURE ACUTE [None]
  - URINARY RETENTION [None]
